FAERS Safety Report 6714271-X (Version None)
Quarter: 2010Q2

REPORT INFORMATION
  Report Type: 
  Country: None (occurrence: None)
  Receive Date: 20100506
  Receipt Date: 20090928
  Transmission Date: 20101027
  Serious: No
  Sender: FDA-Public Use
  Company Number: US-BAUSCH-2009BL004928

PATIENT
  Age: 65 Year
  Sex: Male

DRUGS (7)
  1. LOTEMAX [Suspect]
     Indication: CONJUNCTIVITIS ALLERGIC
     Route: 047
     Dates: start: 20090601, end: 20090619
  2. LOTEMAX [Suspect]
  3. VIGAMOX [Suspect]
     Indication: CONJUNCTIVITIS
     Route: 047
     Dates: start: 20090601, end: 20090608
  4. VIGAMOX [Suspect]
     Indication: CONJUNCTIVITIS ALLERGIC
     Route: 047
     Dates: start: 20090601, end: 20090608
  5. ZADITOR [Suspect]
     Indication: CONJUNCTIVITIS ALLERGIC
     Route: 047
     Dates: start: 20090601, end: 20090601
  6. THERATEARS [Concomitant]
  7. MULTI-VITAMINS [Concomitant]

REACTIONS (3)
  - DRUG INEFFECTIVE [None]
  - EYE DISCHARGE [None]
  - INTRAOCULAR PRESSURE INCREASED [None]
